FAERS Safety Report 11266338 (Version 1)
Quarter: 2015Q3

REPORT INFORMATION
  Report Type: Spontaneous
  Country: US (occurrence: US)
  Receive Date: 20150713
  Receipt Date: 20150713
  Transmission Date: 20151125
  Serious: Yes (Hospitalization, Other)
  Sender: FDA-Public Use
  Company Number: US-MPIJNJ-2012-08314

PATIENT
  Age: 86 Year
  Sex: Female
  Weight: 62.1 kg

DRUGS (2)
  1. VELCADE [Suspect]
     Active Substance: BORTEZOMIB
     Indication: LIGHT CHAIN DISEASE
  2. VELCADE [Suspect]
     Active Substance: BORTEZOMIB
     Indication: PLASMA CELL MYELOMA
     Dosage: 2.5 MG, 1/WEEK
     Route: 042
     Dates: start: 20111111, end: 20120117

REACTIONS (2)
  - Cardiac failure congestive [Unknown]
  - Dyspnoea [Unknown]

NARRATIVE: CASE EVENT DATE: 20120121
